FAERS Safety Report 15872321 (Version 1)
Quarter: 2019Q1

REPORT INFORMATION
  Report Type: Other
  Country: US (occurrence: US)
  Receive Date: 20190126
  Receipt Date: 20190126
  Transmission Date: 20190417
  Serious: No
  Sender: FDA-Public Use
  Company Number: US-ACORDA-ACO_148099_2018

PATIENT
  Age: 37 Year
  Sex: Female

DRUGS (1)
  1. AMPYRA [Suspect]
     Active Substance: DALFAMPRIDINE
     Indication: WERNICKE^S ENCEPHALOPATHY
     Dosage: 10 MG, BID
     Route: 048
     Dates: start: 20180316

REACTIONS (1)
  - Product use in unapproved indication [Unknown]
